FAERS Safety Report 17719412 (Version 1)
Quarter: 2020Q2

REPORT INFORMATION
  Report Type: Spontaneous
  Country: US (occurrence: US)
  Receive Date: 20200428
  Receipt Date: 20200428
  Transmission Date: 20200714
  Serious: No
  Sender: FDA-Public Use
  Company Number: US-ABBVIE-20K-163-3271357-00

PATIENT
  Sex: Male

DRUGS (1)
  1. SKYRIZI [Suspect]
     Active Substance: RISANKIZUMAB-RZAA
     Indication: DERMATITIS PSORIASIFORM
     Dosage: HAD DOSES AT WEEK 0, 4, AND 16
     Route: 065

REACTIONS (1)
  - Dermatitis psoriasiform [Recovering/Resolving]
